FAERS Safety Report 4334275-4 (Version None)
Quarter: 2004Q2

REPORT INFORMATION
  Report Type: 
  Country: None (occurrence: None)
  Receive Date: 20040405
  Receipt Date: 20040329
  Transmission Date: 20050107
  Serious: Yes (Hospitalization, Other)
  Sender: FDA-Public Use
  Company Number: 040329-0000323

PATIENT
  Age: 15 Year
  Sex: Male

DRUGS (5)
  1. TRANXENE [Suspect]
     Indication: AGITATION
     Dosage: 10 MG; IN AM; PO
     Route: 048
     Dates: start: 20000925
  2. TRANXENE [Suspect]
     Indication: AGITATION
     Dosage: 5 MG; IN PM; PO
     Route: 048
     Dates: start: 20000925
  3. DEPAKENE [Suspect]
     Indication: EPILEPSY
     Dosage: 1400.0 MG; QD;PO
     Route: 048
     Dates: end: 20031125
  4. DEPAKENE [Suspect]
     Indication: EPILEPSY
     Dosage: 2000.0 MG; QD; PO
     Route: 048
     Dates: start: 20031125
  5. CYAMEMAZINE [Concomitant]

REACTIONS (4)
  - AGITATION [None]
  - COMPLEX PARTIAL SEIZURES [None]
  - DISEASE RECURRENCE [None]
  - DRUG EFFECT DECREASED [None]
